FAERS Safety Report 14153871 (Version 1)
Quarter: 2017Q4

REPORT INFORMATION
  Report Type: Spontaneous
  Country: US (occurrence: US)
  Receive Date: 20171102
  Receipt Date: 20171102
  Transmission Date: 20180321
  Serious: No
  Sender: FDA-Public Use
  Company Number: US-BEH-2017084831

PATIENT
  Age: 21 Year
  Sex: Male

DRUGS (16)
  1. HIZENTRA [Suspect]
     Active Substance: HUMAN IMMUNOGLOBULIN G
     Indication: IMMUNODEFICIENCY COMMON VARIABLE
     Dosage: 18 G, QOW (EVERY 14 DAYS)
     Route: 058
     Dates: start: 2015
  2. PULMOZYME [Concomitant]
     Active Substance: DORNASE ALFA
     Route: 065
  3. CEFDINIR. [Concomitant]
     Active Substance: CEFDINIR
     Route: 065
  4. TAMIFLU [Concomitant]
     Active Substance: OSELTAMIVIR PHOSPHATE
     Route: 065
  5. MYCOPHENOLATE SODIUM [Concomitant]
     Active Substance: MYCOPHENOLATE SODIUM
     Route: 065
  6. ONDANSETRON [Concomitant]
     Active Substance: ONDANSETRON
     Route: 065
  7. PROAIR HFA [Concomitant]
     Active Substance: ALBUTEROL SULFATE
     Route: 065
  8. SULFAMETHOXAZOLE [Concomitant]
     Active Substance: SULFAMETHOXAZOLE
     Route: 065
  9. APRISO [Concomitant]
     Active Substance: MESALAMINE
     Route: 065
  10. OSELTAMIVIR PHOSPHATE. [Concomitant]
     Active Substance: OSELTAMIVIR PHOSPHATE
     Route: 065
  11. PENICILLIN V POTASSIUM. [Concomitant]
     Active Substance: PENICILLIN V POTASSIUM
     Route: 065
  12. HIZENTRA [Suspect]
     Active Substance: HUMAN IMMUNOGLOBULIN G
     Indication: IMMUNODEFICIENCY
  13. AMOXICILLIN. [Concomitant]
     Active Substance: AMOXICILLIN
     Route: 065
  14. RANITIDINE HCL [Concomitant]
     Active Substance: RANITIDINE HYDROCHLORIDE
     Route: 065
  15. FLUTICASONE PROPIONATE. [Concomitant]
     Active Substance: FLUTICASONE PROPIONATE
     Route: 065
  16. PREDNISONE. [Concomitant]
     Active Substance: PREDNISONE
     Route: 065

REACTIONS (6)
  - Nasopharyngitis [Unknown]
  - Eye infection [Unknown]
  - Pyrexia [Unknown]
  - Headache [Unknown]
  - Administration site erythema [Unknown]
  - Administration site swelling [Unknown]

NARRATIVE: CASE EVENT DATE: 201707
